FAERS Safety Report 5578537-1 (Version None)
Quarter: 2007Q4

REPORT INFORMATION
  Report Type: 
  Country: None (occurrence: None)
  Receive Date: 20071227
  Receipt Date: 20071218
  Transmission Date: 20080405
  Serious: Yes (Hospitalization)
  Sender: FDA-Public Use
  Company Number: A-CH2007-18683

PATIENT
  Age: 68 Year
  Sex: Male
  Weight: 73 kg

DRUGS (8)
  1. TRACLEER [Suspect]
     Indication: SKIN ULCER
     Dosage: 62.5 MG, BID, ORAL
     Route: 048
     Dates: start: 20070917, end: 20071105
  2. EPOETIN BETA (EPOETIN BETA) [Concomitant]
  3. CITALOPRAM HYDROBROMIDE [Concomitant]
  4. ENALAPRIL (HYDROCHLOROTHIAZIDE, ENALAPRIL MALEATE) [Concomitant]
  5. LORAZEPAM [Concomitant]
  6. GLICLAZIDE (GLICLAZIDE) [Concomitant]
  7. ACENOCOUMAROL (ACENOCOUMAROL) [Concomitant]
  8. ACETYLSALICYLIC ACID SRT [Concomitant]

REACTIONS (2)
  - OEDEMA [None]
  - TOXIC SKIN ERUPTION [None]
